FAERS Safety Report 4357002-3 (Version None)
Quarter: 2004Q2

REPORT INFORMATION
  Report Type: 
  Country: None (occurrence: None)
  Receive Date: 20040512
  Receipt Date: 20040423
  Transmission Date: 20050107
  Serious: Yes (Death, Other)
  Sender: FDA-Public Use
  Company Number: PHFR2004GB01865

PATIENT
  Sex: Female

DRUGS (3)
  1. ZOMETA [Suspect]
     Indication: METASTASES TO BONE
     Dosage: 4 MG, ONCE/SINGLE
     Route: 042
     Dates: start: 20040401
  2. ACETAMINOPHEN [Concomitant]
  3. COX II INHIBITOR [Concomitant]

REACTIONS (6)
  - AORTIC DISORDER [None]
  - GENERAL PHYSICAL HEALTH DETERIORATION [None]
  - HEPATIC FAILURE [None]
  - INFUSION RELATED REACTION [None]
  - METASTASES TO LIVER [None]
  - METASTASES TO LUNG [None]
